FAERS Safety Report 7078789-5 (Version None)
Quarter: 2010Q4

REPORT INFORMATION
  Report Type: 
  Country: None (occurrence: None)
  Receive Date: 20101102
  Receipt Date: 20101022
  Transmission Date: 20110411
  Serious: Yes (Other)
  Sender: FDA-Public Use
  Company Number: BR-PFIZER INC-2010135089

PATIENT
  Sex: Male

DRUGS (1)
  1. GEODON [Suspect]
     Dosage: UNK
     Route: 048

REACTIONS (3)
  - ANXIETY [None]
  - DRUG DEPENDENCE [None]
  - SLEEP DISORDER [None]
